FAERS Safety Report 9796008 (Version 1)
Quarter: 2014Q1

REPORT INFORMATION
  Report Type: Spontaneous
  Country: US (occurrence: US)
  Receive Date: 20140103
  Receipt Date: 20140103
  Transmission Date: 20141002
  Serious: No
  Sender: FDA-Public Use
  Company Number: US-GILEAD-2010-0032400

PATIENT
  Sex: Male

DRUGS (3)
  1. CAYSTON [Suspect]
     Indication: BRONCHIECTASIS
  2. CIPROFLOXACIN [Concomitant]
  3. AZTREONAM [Concomitant]

REACTIONS (3)
  - Choking [Unknown]
  - Chest discomfort [Unknown]
  - Throat tightness [Unknown]
